FAERS Safety Report 6911777-5 (Version None)
Quarter: 2010Q3

REPORT INFORMATION
  Report Type: 
  Country: None (occurrence: None)
  Receive Date: 20100806
  Receipt Date: 20070724
  Transmission Date: 20110219
  Serious: No
  Sender: FDA-Public Use
  Company Number: US-PFIZER INC-2007062244

PATIENT
  Sex: Female
  Weight: 81.65 kg

DRUGS (6)
  1. DETROL LA [Suspect]
     Indication: BLADDER DISORDER
     Dates: start: 20070601
  2. VYTORIN [Concomitant]
  3. LEVOTHYROXINE [Concomitant]
  4. ALLEGRA D 24 HOUR [Concomitant]
  5. FLUTICASONE PROPIONATE [Concomitant]
  6. MOEXIPRIL HYDROCHLORIDE [Concomitant]

REACTIONS (1)
  - MENSTRUATION DELAYED [None]
